FAERS Safety Report 18335644 (Version 2)
Quarter: 2020Q4

REPORT INFORMATION
  Report Type: Spontaneous
  Country: US (occurrence: US)
  Receive Date: 20201001
  Receipt Date: 20201106
  Transmission Date: 20210113
  Serious: No
  Sender: FDA-Public Use
  Company Number: US-ASTRAZENECA-2020SF14733

PATIENT
  Sex: Male
  Weight: 88.9 kg

DRUGS (1)
  1. SYMBICORT [Suspect]
     Active Substance: BUDESONIDE\FORMOTEROL FUMARATE DIHYDRATE
     Indication: CHRONIC OBSTRUCTIVE PULMONARY DISEASE
     Dosage: 80/4.5 MCG., 2 PUFFS TWICE A DAY
     Route: 055
     Dates: start: 20200224

REACTIONS (5)
  - Product dose omission issue [Unknown]
  - Intentional device misuse [Not Recovered/Not Resolved]
  - Device malfunction [Unknown]
  - Memory impairment [Not Recovered/Not Resolved]
  - Incorrect dose administered by device [Not Recovered/Not Resolved]
